FAERS Safety Report 9261737 (Version 7)
Quarter: 2014Q2

REPORT INFORMATION
  Report Type: Spontaneous
  Country: US (occurrence: US)
  Receive Date: 20130429
  Receipt Date: 20140428
  Transmission Date: 20141212
  Serious: Yes (Hospitalization, Other)
  Sender: FDA-Public Use
  Company Number: US-009507513-1304USA014858

PATIENT
  Sex: Male
  Weight: 79.82 kg

DRUGS (2)
  1. PROPECIA [Suspect]
     Indication: ANDROGENETIC ALOPECIA
     Dosage: 1 MG, QD
     Route: 048
     Dates: start: 2004
  2. PROPECIA [Suspect]
     Dosage: 1 MG, QD
     Route: 048
     Dates: start: 20090105, end: 2011

REACTIONS (47)
  - Prostate cancer [Unknown]
  - Radical prostatectomy [Unknown]
  - Rotator cuff repair [Unknown]
  - Bladder neck suspension [Unknown]
  - Lymphadenectomy [Unknown]
  - Non-cardiac chest pain [Unknown]
  - Prostatic specific antigen increased [Unknown]
  - Prostatitis [Unknown]
  - Urethral meatus stenosis [Unknown]
  - Hypertension [Unknown]
  - Vision blurred [Unknown]
  - Hypoaesthesia [Unknown]
  - Paraesthesia [Unknown]
  - Left ventricular hypertrophy [Unknown]
  - Urinary incontinence [Unknown]
  - Urethral stricture postoperative [Unknown]
  - Biopsy prostate [Unknown]
  - Ligament operation [Unknown]
  - Pollakiuria [Recovered/Resolved]
  - Urinary retention [Unknown]
  - Urine flow decreased [Unknown]
  - Incision site complication [Unknown]
  - Benign prostatic hyperplasia [Unknown]
  - Biopsy prostate [Unknown]
  - Haematospermia [Unknown]
  - Perineal pain [Recovered/Resolved]
  - Mass [Recovered/Resolved]
  - Nocturia [Unknown]
  - Micturition urgency [Unknown]
  - Metaplasia [Unknown]
  - Anaemia postoperative [Unknown]
  - Decreased appetite [Recovering/Resolving]
  - Constipation [Unknown]
  - Urinary straining [Unknown]
  - Urinary retention [Unknown]
  - Penile curvature [Unknown]
  - Penile pain [Unknown]
  - Nocturia [Unknown]
  - Orgasm abnormal [Unknown]
  - Adverse event [Unknown]
  - Dysuria [Unknown]
  - Spinal osteoarthritis [Unknown]
  - Cognitive disorder [Not Recovered/Not Resolved]
  - Depression [Unknown]
  - Ejaculation failure [Unknown]
  - Erectile dysfunction [Unknown]
  - Sexual dysfunction [Not Recovered/Not Resolved]
